FAERS Safety Report 12627185 (Version 1)
Quarter: 2016Q3

REPORT INFORMATION
  Report Type: Spontaneous
  Country: GB (occurrence: GB)
  Receive Date: 20160805
  Receipt Date: 20160805
  Transmission Date: 20161109
  Serious: Yes (Other)
  Sender: FDA-Public Use
  Company Number: ALCN2016GB005254

PATIENT
  Age: 6 Week
  Sex: Female

DRUGS (3)
  1. AZOPT [Suspect]
     Active Substance: BRINZOLAMIDE
     Dosage: 1 DF, BID
     Route: 047
  2. AZOPT [Suspect]
     Active Substance: BRINZOLAMIDE
     Indication: DEVELOPMENTAL GLAUCOMA
     Dosage: 3 GTT, QD
     Route: 047
  3. AZOPT [Suspect]
     Active Substance: BRINZOLAMIDE
     Dosage: 1 GTT, QD
     Route: 047

REACTIONS (2)
  - Product use issue [Unknown]
  - Seizure [Unknown]
